FAERS Safety Report 7509645-3 (Version None)
Quarter: 2011Q2

REPORT INFORMATION
  Report Type: 
  Country: None (occurrence: None)
  Receive Date: 20110527
  Receipt Date: 20110517
  Transmission Date: 20111010
  Serious: Yes (Other)
  Sender: FDA-Public Use
  Company Number: SE-JNJFOC-20110507665

PATIENT
  Age: 33 Year
  Sex: Male

DRUGS (1)
  1. REMICADE [Suspect]
     Indication: COLITIS ULCERATIVE
     Dosage: 5 INFUSIONS
     Route: 042
     Dates: start: 20100421, end: 20101221

REACTIONS (6)
  - OROPHARYNGEAL PAIN [None]
  - PYREXIA [None]
  - MYALGIA [None]
  - JOINT SWELLING [None]
  - VIRAL INFECTION [None]
  - ARTHRALGIA [None]
